FAERS Safety Report 10559396 (Version 2)
Quarter: 2014Q4

REPORT INFORMATION
  Report Type: Spontaneous
  Country: US (occurrence: US)
  Receive Date: 20141103
  Receipt Date: 20141124
  Transmission Date: 20150529
  Serious: Yes (Other)
  Sender: FDA-Public Use
  Company Number: US-AMGEN-USASP2014083957

PATIENT
  Age: 49 Year
  Sex: Female

DRUGS (3)
  1. STELARA [Concomitant]
     Active Substance: USTEKINUMAB
     Dosage: UNK
     Dates: start: 201407
  2. ENBREL [Suspect]
     Active Substance: ETANERCEPT
     Indication: PSORIASIS
  3. ENBREL [Suspect]
     Active Substance: ETANERCEPT
     Indication: PSORIATIC ARTHROPATHY
     Dosage: 50 MG, QWK
     Route: 058
     Dates: start: 20120624, end: 201406

REACTIONS (8)
  - Gait disturbance [Recovered/Resolved]
  - Back pain [Not Recovered/Not Resolved]
  - Fatigue [Not Recovered/Not Resolved]
  - Psoriatic arthropathy [Not Recovered/Not Resolved]
  - Injection site pain [Not Recovered/Not Resolved]
  - Psoriasis [Recovered/Resolved]
  - Pharyngitis streptococcal [Recovered/Resolved]
  - Drug hypersensitivity [Unknown]

NARRATIVE: CASE EVENT DATE: 201206
